FAERS Safety Report 10231973 (Version 19)
Quarter: 2015Q2

REPORT INFORMATION
  Report Type: Report from Study
  Country: IT (occurrence: IT)
  Receive Date: 20140612
  Receipt Date: 20150609
  Transmission Date: 20150821
  Serious: Yes (Hospitalization, Other)
  Sender: FDA-Public Use
  Company Number: IT-ROCHE-1416241

PATIENT
  Age: 70 Year
  Sex: Female
  Weight: 154 kg

DRUGS (55)
  1. OBINUTUZUMAB [Suspect]
     Active Substance: OBINUTUZUMAB
     Indication: CHRONIC LYMPHOCYTIC LEUKAEMIA
     Dosage: LAST DOSE PRIOR TO PNEUMONITIS, FEVER AND NEUTROPENIA : 1000 MG ON 13/MAY/2014. DAYS 1/2 (SPLIT DOSE
     Route: 042
     Dates: start: 20140415, end: 20140415
  2. BENDAMUSTINE [Suspect]
     Active Substance: BENDAMUSTINE
     Dosage: C2D1, 110MG
     Route: 042
     Dates: start: 20140513, end: 20140513
  3. ALLOPURINOL. [Concomitant]
     Active Substance: ALLOPURINOL
     Route: 048
     Dates: start: 20140414, end: 20140421
  4. ALLOPURINOL. [Concomitant]
     Active Substance: ALLOPURINOL
     Route: 048
     Dates: start: 20140512, end: 20140526
  5. PENTAMIDINE [Concomitant]
     Active Substance: PENTAMIDINE
     Dosage: AS REQUIRED 1 TIME EVERY 4 WEEKS.
     Route: 045
     Dates: start: 20110128, end: 20140828
  6. EUTIROX [Concomitant]
     Active Substance: LEVOTHYROXINE SODIUM
     Indication: SUPPLEMENTATION THERAPY
     Route: 048
     Dates: start: 20140512, end: 20141119
  7. FOLINA (ITALY) [Concomitant]
     Route: 048
     Dates: start: 20140512, end: 20141119
  8. RED BLOOD CELLS [Concomitant]
     Active Substance: HUMAN RED BLOOD CELL
     Dosage: 1 UNIT
     Route: 065
     Dates: start: 20140605, end: 20140605
  9. SOLDESAM [Concomitant]
     Active Substance: DEXAMETHASONE
     Route: 042
     Dates: start: 20140423, end: 20140423
  10. TACHIPIRINA [Concomitant]
     Active Substance: ACETAMINOPHEN
     Route: 048
     Dates: start: 20140513, end: 20140513
  11. CIPROFLOXACIN. [Concomitant]
     Active Substance: CIPROFLOXACIN
     Route: 048
     Dates: start: 20141024, end: 20141031
  12. BENDAMUSTINE [Suspect]
     Active Substance: BENDAMUSTINE
     Indication: CHRONIC LYMPHOCYTIC LEUKAEMIA
     Dosage: C1D1?DATE OF LAST DOSE PRIOR TO PNEUMONITIS, FEVER AND NEUTROPENIA: 14/MAY/2014.
     Route: 042
     Dates: start: 20140415, end: 20140415
  13. LANSOPRAZOLE. [Concomitant]
     Active Substance: LANSOPRAZOLE
     Route: 065
     Dates: start: 20140414
  14. LAMIVUDINE. [Concomitant]
     Active Substance: LAMIVUDINE
     Route: 048
     Dates: start: 20071030, end: 20141119
  15. ALLOPURINOL. [Concomitant]
     Active Substance: ALLOPURINOL
     Route: 048
     Dates: start: 20140422, end: 20140511
  16. AZITROMICINA [Concomitant]
     Active Substance: AZITHROMYCIN DIHYDRATE
     Route: 065
     Dates: start: 20140531, end: 20140605
  17. RED BLOOD CELLS [Concomitant]
     Active Substance: HUMAN RED BLOOD CELL
     Dosage: SINGLE DOSE?1 UNIT
     Route: 042
     Dates: start: 20140922, end: 20140922
  18. SOLDESAM [Concomitant]
     Active Substance: DEXAMETHASONE
     Route: 042
     Dates: start: 20140429, end: 20140429
  19. TACHIPIRINA [Concomitant]
     Active Substance: ACETAMINOPHEN
     Route: 048
     Dates: start: 20140415, end: 20140416
  20. RANITIDINE [Concomitant]
     Active Substance: RANITIDINE\RANITIDINE HYDROCHLORIDE
     Dosage: 1 VIAL
     Route: 042
     Dates: start: 20140415, end: 20140416
  21. OBINUTUZUMAB [Suspect]
     Active Substance: OBINUTUZUMAB
     Dosage: CYCLE 2, DAY1 (90 MG/M2). PLANNED INITIAL INFUSION RATE: 50, ACTUAL MAXIMAL INFUSION RATE: 400; INTR
     Route: 042
     Dates: start: 20140513, end: 20140513
  22. BENDAMUSTINE [Suspect]
     Active Substance: BENDAMUSTINE
     Route: 042
     Dates: end: 20140707
  23. LANSOPRAZOLE. [Concomitant]
     Active Substance: LANSOPRAZOLE
     Route: 065
     Dates: start: 20140416, end: 20141119
  24. LANSOPRAZOLE. [Concomitant]
     Active Substance: LANSOPRAZOLE
     Route: 048
     Dates: start: 20131125, end: 20140415
  25. RED BLOOD CELLS [Concomitant]
     Active Substance: HUMAN RED BLOOD CELL
     Dosage: SINGLE DOSE
     Route: 042
  26. SOLDESAM [Concomitant]
     Active Substance: DEXAMETHASONE
     Route: 042
     Dates: start: 20140513, end: 20140514
  27. OBINUTUZUMAB [Suspect]
     Active Substance: OBINUTUZUMAB
     Dosage: C1D15- PLANNED INITIAL INFUSION RATE: 50, ACTUAL MAXIMAL INFUSION RATE: 400
     Route: 042
     Dates: start: 20140429, end: 20140429
  28. OBINUTUZUMAB [Suspect]
     Active Substance: OBINUTUZUMAB
     Dosage: INTRAVENOUS; TEMPORARY INTERRUPTED ON 06/JUN/2014
     Route: 042
     Dates: end: 20140707
  29. IMMUNOGLOBULINE [Concomitant]
     Indication: PROPHYLAXIS
     Dosage: EVERY 15 DAYS.
     Route: 042
     Dates: start: 20071018
  30. LANSOPRAZOLE. [Concomitant]
     Active Substance: LANSOPRAZOLE
     Route: 048
     Dates: start: 20140416, end: 20141119
  31. RED BLOOD CELLS [Concomitant]
     Active Substance: HUMAN RED BLOOD CELL
     Dosage: 1 UNIT
     Route: 065
     Dates: start: 20140611, end: 20140611
  32. SOLDESAM [Concomitant]
     Active Substance: DEXAMETHASONE
     Route: 042
     Dates: start: 20140415, end: 20140416
  33. RANITIDINE [Concomitant]
     Active Substance: RANITIDINE\RANITIDINE HYDROCHLORIDE
     Dosage: 1 VIAL
     Route: 042
     Dates: start: 20140429, end: 20140429
  34. RANITIDINE [Concomitant]
     Active Substance: RANITIDINE\RANITIDINE HYDROCHLORIDE
     Dosage: 1 VIAL
     Route: 042
     Dates: start: 20140423, end: 20140423
  35. OBINUTUZUMAB [Suspect]
     Active Substance: OBINUTUZUMAB
     Dosage: C1D2- PLANNED INITIAL INFUSION RATE: 50, ACTUAL MAXIMAL INFUSION RATE: 400
     Route: 042
     Dates: start: 20140416, end: 20140416
  36. BENDAMUSTINE [Suspect]
     Active Substance: BENDAMUSTINE
     Dosage: C1D2
     Route: 042
     Dates: start: 20140416, end: 20140416
  37. CEFIXIMA [Concomitant]
     Active Substance: CEFIXIME
     Route: 065
     Dates: start: 20140601, end: 20140605
  38. RED BLOOD CELLS [Concomitant]
     Active Substance: HUMAN RED BLOOD CELL
     Dosage: 1 INFUSION BAG
     Route: 042
     Dates: start: 20140818, end: 20140818
  39. RED BLOOD CELLS [Concomitant]
     Active Substance: HUMAN RED BLOOD CELL
     Dosage: 1 INFUSION BAG
     Route: 042
     Dates: start: 20140919, end: 20140919
  40. TACHIPIRINA [Concomitant]
     Active Substance: ACETAMINOPHEN
     Route: 048
     Dates: start: 20140423, end: 20140423
  41. TRIMETON (ITALY) [Concomitant]
     Dosage: 2 VIALS
     Route: 042
     Dates: start: 20140429, end: 20140429
  42. OXYCODONE [Concomitant]
     Active Substance: OXYCODONE
     Indication: PROPHYLAXIS
     Route: 048
     Dates: start: 20140512, end: 20140525
  43. RANITIDINE [Concomitant]
     Active Substance: RANITIDINE\RANITIDINE HYDROCHLORIDE
     Dosage: 1 VIAL
     Route: 042
     Dates: start: 20140513, end: 20140514
  44. TRIMETON (ITALY) [Concomitant]
     Dosage: 2 VIALS
     Route: 042
     Dates: start: 20140513, end: 20140514
  45. CIPROFLOXACIN. [Concomitant]
     Active Substance: CIPROFLOXACIN
     Route: 048
     Dates: start: 20141114, end: 20141118
  46. OBINUTUZUMAB [Suspect]
     Active Substance: OBINUTUZUMAB
     Dosage: C1D8- PLANNED INITIAL INFUSION RATE: 50, ACTUAL MAXIMAL INFUSION RATE: 400
     Route: 042
     Dates: start: 20140423, end: 20140423
  47. BENDAMUSTINE [Suspect]
     Active Substance: BENDAMUSTINE
     Dosage: C2D2; TEMPORARY INTERRUPTED ON 06/JUN/2014
     Route: 042
     Dates: start: 20140514, end: 20140514
  48. ALLOPURINOL. [Concomitant]
     Active Substance: ALLOPURINOL
     Route: 065
     Dates: start: 20140512
  49. RED BLOOD CELLS [Concomitant]
     Active Substance: HUMAN RED BLOOD CELL
     Dosage: 1 UNIT
     Route: 065
     Dates: start: 20140609, end: 20140609
  50. RED BLOOD CELLS [Concomitant]
     Active Substance: HUMAN RED BLOOD CELL
     Dosage: 1 INFUSION BAG
     Route: 042
     Dates: start: 20140821, end: 20140821
  51. TACHIPIRINA [Concomitant]
     Active Substance: ACETAMINOPHEN
     Route: 048
     Dates: start: 20140429, end: 20140429
  52. TRIMETON (ITALY) [Concomitant]
     Dosage: 2 VIALS
     Route: 042
     Dates: start: 20140415, end: 20140416
  53. TRIMETON (ITALY) [Concomitant]
     Dosage: 2 VIALS
     Route: 042
     Dates: start: 20140423, end: 20140423
  54. ZOFRAN [Concomitant]
     Active Substance: ONDANSETRON HYDROCHLORIDE
     Dosage: 1 VIAL
     Route: 042
     Dates: start: 20140514, end: 20140514
  55. DELTACORTENE [Concomitant]
     Active Substance: PREDNISONE
     Route: 048
     Dates: start: 20140919, end: 20140919

REACTIONS (3)
  - Neutropenia [Not Recovered/Not Resolved]
  - Pneumonitis [Recovered/Resolved]
  - Pneumonitis [Recovered/Resolved]

NARRATIVE: CASE EVENT DATE: 20140601
